FAERS Safety Report 15601450 (Version 2)
Quarter: 2018Q4

REPORT INFORMATION
  Report Type: Spontaneous
  Country: DE (occurrence: DE)
  Receive Date: 20181109
  Receipt Date: 20181127
  Transmission Date: 20190205
  Serious: Yes (Death, Other)
  Sender: FDA-Public Use
  Company Number: DE-PURDUE PHARMA-GBR-2018-0061375

PATIENT
  Age: 76 Year
  Sex: Male

DRUGS (5)
  1. HYDROMORPHONE HYDROCHLORIDE. [Suspect]
     Active Substance: HYDROMORPHONE HYDROCHLORIDE
     Indication: PAIN
  2. HYDROMORPHONE HYDROCHLORIDE. [Suspect]
     Active Substance: HYDROMORPHONE HYDROCHLORIDE
     Indication: MUSCLE SPASTICITY
     Dosage: 3 MG, Q24H
     Route: 058
  3. METAMIZOLE [Suspect]
     Active Substance: METAMIZOLE
     Indication: MUSCLE SPASTICITY
     Dosage: 2.5 G, Q24H
     Route: 058
  4. METAMIZOLE [Suspect]
     Active Substance: METAMIZOLE
     Indication: PAIN
  5. MIDAZOLAM [Suspect]
     Active Substance: MIDAZOLAM HYDROCHLORIDE
     Indication: MUSCLE SPASTICITY
     Dosage: 30 MG, Q24H
     Route: 058

REACTIONS (3)
  - Drug ineffective [Recovered/Resolved]
  - Muscle spasticity [Recovered/Resolved]
  - Death [Fatal]
